FAERS Safety Report 5861628-5 (Version None)
Quarter: 2008Q3

REPORT INFORMATION
  Report Type: 
  Country: None (occurrence: None)
  Receive Date: 20080827
  Receipt Date: 20080604
  Transmission Date: 20090109
  Serious: No
  Sender: FDA-Public Use
  Company Number: US-ABBOTT-08P-163-0455001-00

PATIENT
  Sex: Male
  Weight: 89.438 kg

DRUGS (6)
  1. NIASPAN [Suspect]
     Indication: BLOOD CHOLESTEROL INCREASED
     Dosage: ORANGE COATED 2 TABS AT NIGHT
     Route: 048
     Dates: start: 20070101
  2. NIASPAN [Suspect]
     Indication: BLOOD CHOLESTEROL INCREASED
     Dosage: WHITE PILL
     Dates: start: 20060101, end: 20070101
  3. RAMIPRIL [Concomitant]
     Indication: CORONARY ARTERY DISEASE
     Route: 048
  4. ATORVASTATIN CALCIUM [Concomitant]
     Indication: BLOOD CHOLESTEROL INCREASED
     Route: 048
  5. AMLODIPINE [Concomitant]
     Indication: CORONARY ARTERY DISEASE
     Route: 048
  6. ASPIRIN [Concomitant]
     Indication: CORONARY ARTERY DISEASE
     Route: 048

REACTIONS (2)
  - MEDICATION RESIDUE [None]
  - PARAESTHESIA [None]
